FAERS Safety Report 10207144 (Version 1)
Quarter: 2014Q2

REPORT INFORMATION
  Report Type: Spontaneous
  Country: US (occurrence: US)
  Receive Date: 20140530
  Receipt Date: 20140530
  Transmission Date: 20141212
  Serious: No
  Sender: FDA-Public Use
  Company Number: US-GLAXOSMITHKLINE-A1020524A

PATIENT
  Age: 35 Year
  Sex: Male

DRUGS (2)
  1. VENTOLIN [Suspect]
     Indication: BRONCHITIS
     Dosage: 2SPR AS REQUIRED
     Route: 055
     Dates: start: 20130411
  2. NO CONCURRENT MEDICATIONS [Concomitant]

REACTIONS (1)
  - Drug ineffective [Not Recovered/Not Resolved]
